FAERS Safety Report 9143593 (Version 2)
Quarter: 2013Q1

REPORT INFORMATION
  Report Type: Report from Study
  Country: US (occurrence: US)
  Receive Date: 20130306
  Receipt Date: 20130311
  Transmission Date: 20140127
  Serious: Yes (Death, Hospitalization)
  Sender: FDA-Public Use
  Company Number: US-ROCHE-1197442

PATIENT
  Sex: Male
  Weight: 124.7 kg

DRUGS (10)
  1. VEMURAFENIB [Suspect]
     Indication: PRODUCT USED FOR UNKNOWN INDICATION
     Route: 065
  2. LEVOPHED [Concomitant]
  3. EPINEPHRINE [Concomitant]
  4. PROTONIX [Concomitant]
  5. BUMEX [Concomitant]
     Route: 065
  6. BUMEX [Concomitant]
     Route: 065
  7. GENTAMICIN [Concomitant]
     Route: 065
  8. FENTANYL PATCH [Concomitant]
  9. DILAUDID [Concomitant]
  10. ZOFRAN [Concomitant]
     Indication: NAUSEA
     Route: 042

REACTIONS (6)
  - Disease progression [Fatal]
  - Renal failure [Unknown]
  - Hydronephrosis [Unknown]
  - Hydronephrosis [Unknown]
  - Pleural effusion [Unknown]
  - Pyrexia [Unknown]
